FAERS Safety Report 5883220-9 (Version None)
Quarter: 2008Q3

REPORT INFORMATION
  Report Type: 
  Country: None (occurrence: None)
  Receive Date: 20080910
  Receipt Date: 20080826
  Transmission Date: 20090109
  Serious: Yes (Hospitalization)
  Sender: FDA-Public Use
  Company Number: 2008SP017592

PATIENT
  Age: 18 Year
  Sex: Female

DRUGS (2)
  1. DIPROPHOS (BETAMETHASONE SODIUM PHOSPHATE/DIPROPIONATE) (BETAMETHASONE [Suspect]
     Indication: DERMATITIS ALLERGIC
     Dosage: 1 DF; IM
     Route: 030
     Dates: start: 20080811, end: 20080811
  2. PREDNISOLONE [Concomitant]

REACTIONS (3)
  - EYELID OEDEMA [None]
  - OEDEMA MOUTH [None]
  - RASH GENERALISED [None]
